FAERS Safety Report 25099182 (Version 1)
Quarter: 2025Q1

REPORT INFORMATION
  Report Type: Spontaneous
  Country: CN (occurrence: CN)
  Receive Date: 20250320
  Receipt Date: 20250320
  Transmission Date: 20250408
  Serious: Yes (Hospitalization, Other)
  Sender: CHIESI
  Company Number: CN-CHIESI-2025CHF01730

PATIENT
  Age: 0 Year

DRUGS (6)
  1. CUROSURF [Suspect]
     Active Substance: PORACTANT ALFA
     Indication: Dyspnoea
     Dosage: UNK, BID
     Route: 007
     Dates: start: 20250307
  2. CUROSURF [Suspect]
     Active Substance: PORACTANT ALFA
     Indication: Off label use
  3. CEFOTAXIME [Concomitant]
     Active Substance: CEFOTAXIME SODIUM
     Indication: Allergy prophylaxis
     Dates: start: 20250307
  4. CAFFEINE [Concomitant]
     Active Substance: CAFFEINE
     Indication: Respiratory disorder
     Dates: start: 20250307
  5. MIDAZOLAM [Concomitant]
     Active Substance: MIDAZOLAM
     Indication: Relaxation therapy
     Dates: start: 20250307
  6. FENTANYL [Concomitant]
     Active Substance: FENTANYL
     Indication: Relaxation therapy
     Dates: start: 20250307

REACTIONS (4)
  - Lung disorder [Recovering/Resolving]
  - Neonatal pneumothorax [Recovering/Resolving]
  - Drug ineffective for unapproved indication [Unknown]
  - Off label use [Recovered/Resolved]

NARRATIVE: CASE EVENT DATE: 20250307
